FAERS Safety Report 8123092-5 (Version None)
Quarter: 2012Q1

REPORT INFORMATION
  Report Type: 
  Country: None (occurrence: None)
  Receive Date: 20120208
  Receipt Date: 20120203
  Transmission Date: 20120608
  Serious: No
  Sender: FDA-Public Use
  Company Number: US-PFIZER INC-2011256080

PATIENT
  Sex: Female

DRUGS (1)
  1. ADVIL PM [Suspect]
     Indication: ARTHRALGIA
     Dosage: 200 MG, 1X/DAY
     Route: 048
     Dates: start: 20111001, end: 20111001

REACTIONS (2)
  - INSOMNIA [None]
  - DRUG INEFFECTIVE [None]
